FAERS Safety Report 11843408 (Version 1)
Quarter: 2015Q4

REPORT INFORMATION
  Report Type: Spontaneous
  Country: US (occurrence: US)
  Receive Date: 20151217
  Receipt Date: 20151217
  Transmission Date: 20160305
  Serious: Yes (Hospitalization)
  Sender: FDA-Public Use
  Company Number: US-AUROBINDO-AUR-APL-2015-11285

PATIENT
  Age: 8 Year
  Sex: Male

DRUGS (4)
  1. QUETIAPINE [Interacting]
     Active Substance: QUETIAPINE
     Dosage: 300 MG, 3 TIMES A DAY
     Route: 065
  2. OXCARBAZEPINE. [Interacting]
     Active Substance: OXCARBAZEPINE
     Indication: AGGRESSION
     Dosage: 45 MG, TWO TIMES A DAY
     Route: 065
  3. QUETIAPINE [Suspect]
     Active Substance: QUETIAPINE
     Indication: AGGRESSION
     Dosage: 200 MG EVERY MORNING, 200 MG AT NOON, AND 300 MG AT BEDTIME
     Route: 065
  4. CLONIDINE. [Concomitant]
     Active Substance: CLONIDINE
     Indication: AGGRESSION
     Dosage: 0.1 MG, TWO TIMES A DAY
     Route: 065

REACTIONS (2)
  - Drug level decreased [Recovered/Resolved]
  - Drug interaction [Recovered/Resolved]
